FAERS Safety Report 6758583-2 (Version None)
Quarter: 2010Q2

REPORT INFORMATION
  Report Type: 
  Country: None (occurrence: None)
  Receive Date: 20100607
  Receipt Date: 20100531
  Transmission Date: 20101027
  Serious: Yes (Death)
  Sender: FDA-Public Use
  Company Number: FR-ROCHE-706747

PATIENT
  Sex: Female
  Weight: 35 kg

DRUGS (13)
  1. BEVACIZUMAB [Suspect]
     Indication: NON-SMALL CELL LUNG CANCER
     Route: 042
     Dates: start: 20100525, end: 20100529
  2. PEMETREXED [Suspect]
     Indication: NON-SMALL CELL LUNG CANCER
     Route: 042
     Dates: start: 20100525, end: 20100529
  3. CISPLATIN [Suspect]
     Indication: NON-SMALL CELL LUNG CANCER
     Route: 042
     Dates: start: 20100525, end: 20100529
  4. SKENAN [Concomitant]
     Dates: start: 20070901
  5. SKENAN [Concomitant]
     Dosage: START DATE: 2010
  6. MEDROL [Concomitant]
     Dates: start: 20100522, end: 20100525
  7. SPECIAFOLDINE [Concomitant]
     Dates: start: 20100518
  8. LYRICA [Concomitant]
     Dates: start: 20100525
  9. ACTISKENAN [Concomitant]
     Dosage: START DATE: 2010
  10. AMITRIPTYLINE HCL [Concomitant]
     Dosage: START DATE: 2010
  11. IMOVANE [Concomitant]
     Dosage: START DATE: 2010
  12. NEXIUM [Concomitant]
     Dosage: START DATE: 2010
  13. ATARAX [Concomitant]
     Dosage: START DATE: 50 MG

REACTIONS (2)
  - CEREBRAL HAEMORRHAGE [None]
  - HAEMOPTYSIS [None]
